FAERS Safety Report 4943633-6 (Version None)
Quarter: 2006Q1

REPORT INFORMATION
  Report Type: 
  Country: None (occurrence: None)
  Receive Date: 20060310
  Receipt Date: 20060306
  Transmission Date: 20060701
  Serious: Yes (Hospitalization)
  Sender: FDA-Public Use
  Company Number: 200602320

PATIENT
  Age: 12 Month
  Sex: Male

DRUGS (1)
  1. ALESION (EPINASTINE) [Suspect]
     Indication: DERMATITIS
     Dates: start: 20060218, end: 20060223

REACTIONS (1)
  - DEPRESSED LEVEL OF CONSCIOUSNESS [None]
